FAERS Safety Report 5022557-2 (Version None)
Quarter: 2006Q2

REPORT INFORMATION
  Report Type: 
  Country: None (occurrence: None)
  Receive Date: 20060605
  Receipt Date: 20060519
  Transmission Date: 20061013
  Serious: Yes (Other)
  Sender: FDA-Public Use
  Company Number: DE200605004649

PATIENT
  Age: 51 Year
  Sex: Female
  Weight: 66 kg

DRUGS (1)
  1. YENTREVE(DULOXETINE HYDROCHLORIDE) CAPSULE [Suspect]
     Indication: URINARY INCONTINENCE
     Dosage: 20 MG, UNK, ORAL
     Route: 048
     Dates: start: 20060512

REACTIONS (1)
  - DIVERTICULITIS [None]
